FAERS Safety Report 9263410 (Version 1)
Quarter: 2013Q2

REPORT INFORMATION
  Report Type: Spontaneous
  Country: RU (occurrence: RU)
  Receive Date: 20130430
  Receipt Date: 20130430
  Transmission Date: 20140414
  Serious: Yes (Other)
  Sender: FDA-Public Use
  Company Number: RU-BAYER-2013-050966

PATIENT
  Age: 48 Year
  Sex: Female

DRUGS (1)
  1. ASPIRIN [Suspect]
     Dosage: UNK
     Route: 048

REACTIONS (3)
  - Dyspnoea [Recovering/Resolving]
  - Urticaria [Recovering/Resolving]
  - Cough [Recovering/Resolving]
